FAERS Safety Report 9471629 (Version 1)
Quarter: 2013Q3

REPORT INFORMATION
  Report Type: Spontaneous
  Country: IT (occurrence: None)
  Receive Date: 20130819
  Receipt Date: 20130819
  Transmission Date: 20140515
  Serious: Yes (Hospitalization)
  Sender: FDA-Public Use
  Company Number: B0915217A

PATIENT
  Age: 5 Month
  Sex: Male

DRUGS (4)
  1. SALBUTAMOL SULPHATE (FORMULATION UNKNOWN) (GENERIC) (ALBUTEROL SULFATE) [Suspect]
     Indication: COUGH
  2. FLUTICASONE PROPIONATE (FORMULATION UNKOWN0 (GENERIC) FLUTICASONE PROPIONATE) [Suspect]
     Indication: COUGH
  3. BETAMETHASONE (FORMULATION UNKNOWN) (BETAMETHASONE) (GENERIC) [Suspect]
     Indication: COUGH
  4. AMOX. TRIHYD+POT.CLAVULAN. (FORMULATION UNKNOWN) (GENERIC) (AMOX.TRIHYD+POT.CLAVULAN.) [Suspect]
     Indication: COUGH

REACTIONS (1)
  - Stevens-Johnson syndrome [None]
